FAERS Safety Report 7601869-X (Version None)
Quarter: 2011Q3

REPORT INFORMATION
  Report Type: 
  Country: None (occurrence: None)
  Receive Date: 20110711
  Receipt Date: 20110607
  Transmission Date: 20111222
  Serious: No
  Sender: FDA-Public Use
  Company Number: US-BAYER-2011-049521

PATIENT
  Age: 22 Year
  Sex: Female
  Weight: 66 kg

DRUGS (1)
  1. ALEVE (CAPLET) [Suspect]
     Dosage: 2 DF, PRN
     Route: 048
     Dates: start: 20110605

REACTIONS (1)
  - NO ADVERSE EVENT [None]
